FAERS Safety Report 23511388 (Version 15)
Quarter: 2025Q4

REPORT INFORMATION
  Report Type: Report from Study
  Country: US (occurrence: US)
  Receive Date: 20240212
  Receipt Date: 20251120
  Transmission Date: 20260117
  Serious: Yes (Other)
  Sender: TAKEDA
  Company Number: US-TAKEDA-2023TUS056771

PATIENT
  Age: 56 Year
  Sex: Male

DRUGS (9)
  1. ADVATE [Suspect]
     Active Substance: ANTIHEMOPHILIC FACTOR, HUMAN RECOMBINANT
     Indication: Haemorrhage
     Dosage: 2600 INTERNATIONAL UNIT
  2. ADVATE [Suspect]
     Active Substance: ANTIHEMOPHILIC FACTOR, HUMAN RECOMBINANT
     Dosage: 5200 INTERNATIONAL UNIT
  3. ADVATE [Suspect]
     Active Substance: ANTIHEMOPHILIC FACTOR, HUMAN RECOMBINANT
     Dosage: 2673 INTERNATIONAL UNIT
  4. ADVATE [Suspect]
     Active Substance: ANTIHEMOPHILIC FACTOR, HUMAN RECOMBINANT
     Dosage: 5345 INTERNATIONAL UNIT
  5. ADVATE [Suspect]
     Active Substance: ANTIHEMOPHILIC FACTOR, HUMAN RECOMBINANT
     Dosage: 5345 INTERNATIONAL UNIT
  6. ADVATE [Suspect]
     Active Substance: ANTIHEMOPHILIC FACTOR, HUMAN RECOMBINANT
     Dosage: 2670 INTERNATIONAL UNIT
  7. ADVATE [Suspect]
     Active Substance: ANTIHEMOPHILIC FACTOR, HUMAN RECOMBINANT
     Dosage: 5340 INTERNATIONAL UNIT
  8. ADVATE [Suspect]
     Active Substance: ANTIHEMOPHILIC FACTOR, HUMAN RECOMBINANT
     Dosage: 2670 INTERNATIONAL UNIT
  9. ADVATE [Suspect]
     Active Substance: ANTIHEMOPHILIC FACTOR, HUMAN RECOMBINANT
     Dosage: 5340 INTERNATIONAL UNIT

REACTIONS (14)
  - Haemorrhage [Not Recovered/Not Resolved]
  - Haemarthrosis [Unknown]
  - Contusion [Unknown]
  - Muscle haemorrhage [Unknown]
  - Food poisoning [Unknown]
  - Ligament sprain [Recovered/Resolved]
  - Back injury [Not Recovered/Not Resolved]
  - Injury [Unknown]
  - Joint injury [Unknown]
  - Pain [Unknown]
  - Road traffic accident [Unknown]
  - Pain in extremity [Unknown]
  - Neck pain [Unknown]
  - Limb injury [Unknown]

NARRATIVE: CASE EVENT DATE: 20230604
